FAERS Safety Report 9826087 (Version 1)
Quarter: 2013Q4

REPORT INFORMATION
  Report Type: Spontaneous
  Country: US (occurrence: None)
  Receive Date: 20131223
  Receipt Date: 20131223
  Transmission Date: 20140711
  Serious: Yes (Other)
  Sender: FDA-Public Use
  Company Number: 218408LEO

PATIENT
  Age: 51 Year
  Sex: Female

DRUGS (1)
  1. PICATO [Suspect]
     Indication: ACTINIC KERATOSIS
     Route: 061
     Dates: start: 20120713, end: 20120715

REACTIONS (7)
  - Application site swelling [None]
  - Application site vesicles [None]
  - Application site ulcer [None]
  - Erythema [None]
  - Burning sensation [None]
  - Off label use [None]
  - Drug administered at inappropriate site [None]
